FAERS Safety Report 19585112 (Version 2)
Quarter: 2022Q2

REPORT INFORMATION
  Report Type: Spontaneous
  Country: FR (occurrence: FR)
  Receive Date: 20210720
  Receipt Date: 20220506
  Transmission Date: 20220721
  Serious: Yes (Other)
  Sender: FDA-Public Use
  Company Number: FR-INCYTE CORPORATION-2020IN012493

PATIENT
  Age: 8 Year
  Sex: Female
  Weight: 28 kg

DRUGS (6)
  1. METHOTREXATE [Suspect]
     Active Substance: METHOTREXATE
     Indication: Acute lymphocytic leukaemia recurrent
     Dosage: UNK
     Route: 037
  2. METHOTREXATE [Suspect]
     Active Substance: METHOTREXATE
     Dosage: UNK
     Dates: start: 20201211, end: 20201211
  3. METHOTREXATE [Suspect]
     Active Substance: METHOTREXATE
     Dosage: UNK
     Dates: start: 20201219, end: 20201219
  4. METHOTREXATE [Suspect]
     Active Substance: METHOTREXATE
     Dosage: UNK
     Dates: start: 20201226, end: 20201226
  5. POSACONAZOLE [Interacting]
     Active Substance: POSACONAZOLE
     Indication: Antifungal prophylaxis
     Dosage: UNK
     Route: 065
     Dates: start: 20201224
  6. ICLUSIG [Interacting]
     Active Substance: PONATINIB
     Indication: Acute lymphocytic leukaemia recurrent
     Dosage: 15 MILLIGRAM, QD
     Route: 048
     Dates: start: 20201212

REACTIONS (4)
  - Hepatic cytolysis [Recovered/Resolved]
  - Drug interaction [Unknown]
  - Off label use [Unknown]
  - Product administered to patient of inappropriate age [Unknown]

NARRATIVE: CASE EVENT DATE: 20201212
